FAERS Safety Report 5293758-3 (Version None)
Quarter: 2007Q2

REPORT INFORMATION
  Report Type: 
  Country: None (occurrence: None)
  Receive Date: 20070411
  Receipt Date: 20070330
  Transmission Date: 20071010
  Serious: Yes (Life-Threatening, Hospitalization, Other)
  Sender: FDA-Public Use
  Company Number: US-PFIZER INC-2005104989

PATIENT
  Sex: Female

DRUGS (8)
  1. NEURONTIN [Suspect]
     Indication: BIPOLAR DISORDER
  2. NEURONTIN [Suspect]
     Indication: DEPRESSION
  3. WELLBUTRIN [Suspect]
     Route: 048
  4. XOPENEX [Concomitant]
  5. MONTELUKAST SODIUM [Concomitant]
     Route: 048
  6. ZYRTEC [Concomitant]
     Route: 048
  7. ZYPREXA [Concomitant]
     Route: 048
  8. CELEXA [Concomitant]
     Route: 048

REACTIONS (4)
  - DRUG INEFFECTIVE FOR UNAPPROVED INDICATION [None]
  - GRAND MAL CONVULSION [None]
  - OVERDOSE [None]
  - SUICIDE ATTEMPT [None]
